FAERS Safety Report 7353742-2 (Version None)
Quarter: 2011Q1

REPORT INFORMATION
  Report Type: 
  Country: None (occurrence: None)
  Receive Date: 20110315
  Receipt Date: 20110310
  Transmission Date: 20110831
  Serious: Yes (Hospitalization, Disabling, Other)
  Sender: FDA-Public Use
  Company Number: US-PFIZER INC-2010176600

PATIENT
  Sex: Female

DRUGS (10)
  1. CHANTIX [Suspect]
     Indication: SMOKING CESSATION THERAPY
     Dosage: STARTER PACK
     Dates: start: 20080101, end: 20080227
  2. LAMICTAL [Concomitant]
     Indication: ANXIETY
     Dosage: UNK
     Dates: start: 20020101
  3. LAMICTAL [Concomitant]
     Indication: DEPRESSION
  4. RISPERDAL [Concomitant]
     Indication: BIPOLAR DISORDER
  5. KLONOPIN [Concomitant]
     Indication: ANXIETY
     Dosage: UNK
     Dates: start: 20020101
  6. AMBIEN [Concomitant]
     Indication: INSOMNIA
     Dosage: UNK
     Dates: start: 20020101
  7. RISPERDAL [Concomitant]
     Indication: DEPRESSION
     Dosage: UNK
     Dates: start: 20020101
  8. ZOLOFT [Concomitant]
     Indication: DEPRESSION
     Dosage: UNK
     Dates: start: 20020101
  9. LAMICTAL [Concomitant]
     Indication: BIPOLAR DISORDER
  10. ZOLOFT [Concomitant]
     Indication: ANXIETY

REACTIONS (11)
  - GAIT DISTURBANCE [None]
  - CONFUSIONAL STATE [None]
  - INSOMNIA [None]
  - DEPRESSION [None]
  - INTENTIONAL OVERDOSE [None]
  - SUICIDE ATTEMPT [None]
  - BIPOLAR DISORDER [None]
  - ANXIETY [None]
  - FALL [None]
  - COGNITIVE DISORDER [None]
  - MENTAL DISORDER [None]
